FAERS Safety Report 6662967-0 (Version None)
Quarter: 2010Q2

REPORT INFORMATION
  Report Type: 
  Country: None (occurrence: None)
  Receive Date: 20100401
  Receipt Date: 20100322
  Transmission Date: 20101027
  Serious: Yes (Death, Hospitalization)
  Sender: FDA-Public Use
  Company Number: GB-TEVA-228963ISR

PATIENT
  Age: 74 Year
  Sex: Male

DRUGS (2)
  1. CISPLATIN [Suspect]
     Indication: LUNG NEOPLASM MALIGNANT
     Route: 042
     Dates: start: 20090518, end: 20090706
  2. VINORELBINE [Suspect]
     Route: 042
     Dates: start: 20090518, end: 20090717

REACTIONS (1)
  - INTERSTITIAL LUNG DISEASE [None]
